FAERS Safety Report 7959152-9 (Version None)
Quarter: 2011Q4

REPORT INFORMATION
  Report Type: 
  Country: None (occurrence: None)
  Receive Date: 20111206
  Receipt Date: 20111201
  Transmission Date: 20120403
  Serious: Yes (Death, Hospitalization)
  Sender: FDA-Public Use
  Company Number: KR-SANOFI-AVENTIS-2011SA079362

PATIENT
  Age: 73 Year
  Sex: Male

DRUGS (6)
  1. FLUOROURACIL [Suspect]
     Route: 065
  2. ELOXATIN [Suspect]
     Route: 065
  3. FLUOROURACIL [Suspect]
     Route: 065
     Dates: start: 20090901
  4. LEUCOVORIN CALCIUM [Suspect]
     Route: 065
     Dates: start: 20090901
  5. LEUCOVORIN CALCIUM [Suspect]
     Route: 065
  6. ELOXATIN [Suspect]
     Route: 065
     Dates: start: 20090901

REACTIONS (9)
  - RESPIRATORY FAILURE [None]
  - PULMONARY FIBROSIS [None]
  - INTERSTITIAL LUNG DISEASE [None]
  - RALES [None]
  - LEUKOCYTOSIS [None]
  - C-REACTIVE PROTEIN INCREASED [None]
  - DYSPNOEA EXERTIONAL [None]
  - LUNG CONSOLIDATION [None]
  - PYREXIA [None]
